FAERS Safety Report 9449735 (Version 2)
Quarter: 2013Q4

REPORT INFORMATION
  Report Type: Spontaneous
  Country: FR (occurrence: FR)
  Receive Date: 20130809
  Receipt Date: 20131018
  Transmission Date: 20140711
  Serious: Yes (Hospitalization)
  Sender: FDA-Public Use
  Company Number: FR-JNJFOC-20130801355

PATIENT
  Age: 65 Year
  Sex: Female

DRUGS (16)
  1. IXPRIM [Suspect]
     Indication: NECK PAIN
     Route: 048
     Dates: start: 20130314, end: 2013
  2. DIAMICRON [Suspect]
     Indication: DIABETES MELLITUS
     Route: 048
     Dates: end: 201304
  3. LAMALINE [Suspect]
     Indication: NECK PAIN
     Route: 048
     Dates: start: 20130312, end: 2013
  4. VOLTARENE [Suspect]
     Indication: NECK PAIN
     Route: 003
     Dates: start: 20130305, end: 2013
  5. DOLIPRANE [Suspect]
     Indication: NECK PAIN
     Route: 048
     Dates: start: 20130312, end: 2013
  6. COAPROVEL [Suspect]
     Indication: HYPERTENSION
     Route: 048
  7. AMLOR [Suspect]
     Indication: HYPERTENSION
     Route: 048
  8. TAHOR [Suspect]
     Indication: HYPERCHOLESTEROLAEMIA
     Route: 048
     Dates: end: 201304
  9. LEVOTHYROX [Suspect]
     Indication: HYPOTHYROIDISM
     Route: 048
  10. SEROPLEX [Suspect]
     Indication: PRODUCT USED FOR UNKNOWN INDICATION
     Route: 048
     Dates: start: 201212, end: 201304
  11. VOLTARENE [Suspect]
     Indication: NECK PAIN
     Route: 048
     Dates: start: 20130305, end: 2013
  12. EUCREAS [Suspect]
     Indication: DIABETES MELLITUS
     Route: 048
     Dates: start: 201304
  13. TRAMADOL [Concomitant]
     Indication: PRODUCT USED FOR UNKNOWN INDICATION
     Route: 065
     Dates: start: 20130424
  14. HUMALOG [Concomitant]
     Indication: PRODUCT USED FOR UNKNOWN INDICATION
     Route: 058
     Dates: start: 20130424
  15. QUESTRAN [Concomitant]
     Indication: PRODUCT USED FOR UNKNOWN INDICATION
     Route: 048
     Dates: start: 20130424
  16. LANTUS [Concomitant]
     Indication: PRODUCT USED FOR UNKNOWN INDICATION
     Route: 058
     Dates: start: 20130424

REACTIONS (4)
  - Hepatitis cholestatic [Recovered/Resolved]
  - Jaundice [Recovered/Resolved]
  - Pruritus [Recovered/Resolved]
  - Overdose [Not Recovered/Not Resolved]
